FAERS Safety Report 5531555-1 (Version None)
Quarter: 2007Q4

REPORT INFORMATION
  Report Type: 
  Country: None (occurrence: None)
  Receive Date: 20071203
  Receipt Date: 20071127
  Transmission Date: 20080405
  Serious: Yes (Other)
  Sender: FDA-Public Use
  Company Number: PHRM2007FR02692

PATIENT
  Age: 90 Year
  Sex: Female

DRUGS (2)
  1. VALSARTAN [Suspect]
     Indication: HYPERTENSION
     Route: 048
  2. PARACETAMOL [Concomitant]

REACTIONS (1)
  - HYPONATRAEMIA [None]
